FAERS Safety Report 9967115 (Version 1)
Quarter: 2014Q1

REPORT INFORMATION
  Report Type: Report from Study
  Country: US (occurrence: US)
  Receive Date: 20140305
  Receipt Date: 20140305
  Transmission Date: 20141002
  Serious: Yes (Other)
  Sender: FDA-Public Use
  Company Number: US-ABBVIE-13P-163-1138386-00

PATIENT
  Age: 23 Year
  Sex: Female

DRUGS (11)
  1. HUMIRA [Suspect]
     Indication: CROHN^S DISEASE
     Dates: start: 20130727, end: 20130810
  2. HUMIRA [Suspect]
     Dates: start: 20130810
  3. PENTASA [Concomitant]
     Indication: PRODUCT USED FOR UNKNOWN INDICATION
  4. FUROSEMIDE [Concomitant]
     Indication: PRODUCT USED FOR UNKNOWN INDICATION
     Route: 048
  5. TRUBIOTIC [Concomitant]
     Indication: PRODUCT USED FOR UNKNOWN INDICATION
     Route: 048
  6. NEXIUM [Concomitant]
     Indication: PRODUCT USED FOR UNKNOWN INDICATION
     Route: 048
  7. VIT C [Concomitant]
     Indication: PRODUCT USED FOR UNKNOWN INDICATION
  8. VIT E [Concomitant]
     Indication: PRODUCT USED FOR UNKNOWN INDICATION
  9. PAPAYA [Concomitant]
     Indication: PRODUCT USED FOR UNKNOWN INDICATION
  10. MULTIVITAMIN [Concomitant]
     Indication: PRODUCT USED FOR UNKNOWN INDICATION
  11. B-12 [Concomitant]
     Indication: PRODUCT USED FOR UNKNOWN INDICATION
     Dosage: DAILY
     Route: 048

REACTIONS (4)
  - Dehydration [Recovered/Resolved]
  - Road traffic accident [Unknown]
  - Heart rate increased [Unknown]
  - Pyrexia [Unknown]
